FAERS Safety Report 12340933 (Version 1)
Quarter: 2016Q2

REPORT INFORMATION
  Report Type: Spontaneous
  Country: US (occurrence: None)
  Receive Date: 20160505
  Receipt Date: 20160505
  Transmission Date: 20160815
  Serious: Yes (Other)
  Sender: FDA-Public Use
  Company Number: None

PATIENT
  Age: 12 Year
  Sex: Female
  Weight: 31.75 kg

DRUGS (1)
  1. OMNITROPE [Suspect]
     Active Substance: SOMATROPIN
     Indication: GROWTH HORMONE DEFICIENCY
     Dosage: 60 INJECTION(S) AT BEDTIME GIVEN INTO/UNDER THE SKIN
     Route: 058

REACTIONS (3)
  - Liquid product physical issue [None]
  - Product quality issue [None]
  - Drug effect incomplete [None]

NARRATIVE: CASE EVENT DATE: 20150531
